FAERS Safety Report 23729389 (Version 1)
Quarter: 2024Q2

REPORT INFORMATION
  Report Type: Spontaneous
  Country: US (occurrence: US)
  Receive Date: 20240410
  Receipt Date: 20240410
  Transmission Date: 20240716
  Serious: Yes (Hospitalization, Other)
  Sender: FDA-Public Use
  Company Number: US-GILEAD-2024-0668856

PATIENT
  Age: 56 Year
  Sex: Male

DRUGS (1)
  1. TECARTUS [Suspect]
     Active Substance: BREXUCABTAGENE AUTOLEUCEL
     Indication: Mantle cell lymphoma
     Dosage: UNK
     Route: 042
     Dates: start: 20210402

REACTIONS (6)
  - COVID-19 [Unknown]
  - Neuropathy peripheral [Unknown]
  - Gingival disorder [Unknown]
  - Tooth disorder [Unknown]
  - Ill-defined disorder [Unknown]
  - Tooth loss [Unknown]

NARRATIVE: CASE EVENT DATE: 20211001
